FAERS Safety Report 5446862-0 (Version None)
Quarter: 2007Q3

REPORT INFORMATION
  Report Type: 
  Country: None (occurrence: None)
  Receive Date: 20070907
  Receipt Date: 20070830
  Transmission Date: 20080115
  Serious: Yes (Hospitalization)
  Sender: FDA-Public Use
  Company Number: FR-ABBOTT-07P-056-0415738-00

PATIENT
  Sex: Female

DRUGS (1)
  1. VERCYTE [Suspect]
     Indication: POLYCYTHAEMIA VERA
     Route: 048
     Dates: start: 20070101, end: 20070501

REACTIONS (4)
  - AGRANULOCYTOSIS [None]
  - ANAEMIA [None]
  - BONE MARROW FAILURE [None]
  - PANCYTOPENIA [None]
